FAERS Safety Report 22730559 (Version 2)
Quarter: 2024Q1

REPORT INFORMATION
  Report Type: Spontaneous
  Country: FR (occurrence: FR)
  Receive Date: 20230720
  Receipt Date: 20240202
  Transmission Date: 20240410
  Serious: Yes (Other)
  Sender: FDA-Public Use
  Company Number: FR-CHEPLA-2023007632

PATIENT
  Age: 30 Year
  Sex: Male

DRUGS (8)
  1. METHOTREXATE [Suspect]
     Active Substance: METHOTREXATE
     Indication: Pulmonary sarcoidosis
     Route: 065
  2. SOLU-MEDROL [Suspect]
     Active Substance: METHYLPREDNISOLONE SODIUM SUCCINATE
     Indication: Pulmonary sarcoidosis
     Route: 065
  3. DUPIXENT [Concomitant]
     Active Substance: DUPILUMAB
     Indication: Dermatitis atopic
     Route: 065
     Dates: start: 201803
  4. PREDNISONE [Suspect]
     Active Substance: PREDNISONE
     Indication: Pulmonary sarcoidosis
     Route: 065
  5. DESONIDE [Concomitant]
     Active Substance: DESONIDE
     Indication: Hand dermatitis
     Dosage: USES SMALL AMOUNTS
     Route: 065
  6. OLUMIANT [Concomitant]
     Active Substance: BARICITINIB
     Indication: Dermatitis atopic
     Route: 065
  7. NERISONE [Concomitant]
     Active Substance: DIFLUCORTOLONE VALERATE
     Indication: Eczema
     Dosage: USES SMALL AMOUNTS
     Route: 065
  8. Emollient [Concomitant]
     Indication: Hand dermatitis
     Dosage: 1 TO 2 MONTHS
     Route: 065

REACTIONS (1)
  - Osteonecrosis [Recovering/Resolving]

NARRATIVE: CASE EVENT DATE: 20210101
